FAERS Safety Report 6449654-9 (Version None)
Quarter: 2009Q4

REPORT INFORMATION
  Report Type: 
  Country: None (occurrence: None)
  Receive Date: 20091120
  Receipt Date: 20091112
  Transmission Date: 20100525
  Serious: Yes (Hospitalization)
  Sender: FDA-Public Use
  Company Number: PHHY2009GB43335

PATIENT
  Sex: Male

DRUGS (5)
  1. CLOZARIL [Suspect]
     Indication: SCHIZOPHRENIA
     Dosage: UNK
     Dates: start: 20030204, end: 20091001
  2. CLOZARIL [Suspect]
     Dosage: UNK
     Dates: start: 20091007
  3. SULPIRIDE [Concomitant]
     Indication: SCHIZOPHRENIA
     Dosage: 300 MG, BID
     Route: 048
  4. HYOSCINE [Concomitant]
     Indication: SALIVARY HYPERSECRETION
     Dosage: 300 MG, UNK
     Route: 048
  5. SIMVASTATIN [Concomitant]
     Indication: RENAL FAILURE CHRONIC
     Dosage: 10 MG, UNK

REACTIONS (7)
  - BLOOD CREATINE PHOSPHOKINASE INCREASED [None]
  - FALL [None]
  - HYPOXIA [None]
  - LUNG DISORDER [None]
  - PNEUMONIA [None]
  - PYREXIA [None]
  - RENAL FAILURE CHRONIC [None]
